FAERS Safety Report 9299218 (Version 4)
Quarter: 2013Q2

REPORT INFORMATION
  Report Type: Spontaneous
  Country: US (occurrence: US)
  Receive Date: 20130520
  Receipt Date: 20130613
  Transmission Date: 20140414
  Serious: No
  Sender: FDA-Public Use
  Company Number: US-009507513-1305USA005007

PATIENT
  Sex: Female

DRUGS (1)
  1. NASONEX [Suspect]
     Indication: NASAL CONGESTION
     Dosage: 2 SPRAYS EACH NOSTRIL ONCE DAILY, INTRANASAL
     Route: 045

REACTIONS (3)
  - Nasal congestion [Recovered/Resolved]
  - Drug dose omission [Unknown]
  - Product quality issue [Unknown]
